FAERS Safety Report 13274845 (Version 9)
Quarter: 2018Q2

REPORT INFORMATION
  Report Type: Report from Study
  Country: US (occurrence: US)
  Receive Date: 20170227
  Receipt Date: 20180626
  Transmission Date: 20180711
  Serious: Yes (Death, Hospitalization)
  Sender: FDA-Public Use
  Company Number: US-ACTELION-A-US2016-147269

PATIENT
  Age: 68 Year
  Sex: Female
  Weight: 82.54 kg

DRUGS (8)
  1. ORENITRAM [Concomitant]
     Active Substance: TREPROSTINIL
  2. ADCIRCA [Concomitant]
     Active Substance: TADALAFIL
  3. LASIX [Concomitant]
     Active Substance: FUROSEMIDE
     Dosage: 40 MG, UNK
  4. ADEMPAS [Concomitant]
     Active Substance: RIOCIGUAT
  5. REMODULIN [Suspect]
     Active Substance: TREPROSTINIL
     Dosage: UNK
     Route: 058
  6. OPSUMIT [Suspect]
     Active Substance: MACITENTAN
     Indication: PULMONARY ARTERIAL HYPERTENSION
     Dosage: 10 MG, QD
     Route: 048
     Dates: start: 20150726
  7. REMODULIN [Suspect]
     Active Substance: TREPROSTINIL
     Indication: PULMONARY ARTERIAL HYPERTENSION
     Route: 042
  8. AMLODIPINE [Concomitant]
     Active Substance: AMLODIPINE BESYLATE

REACTIONS (56)
  - Syncope [Recovered/Resolved]
  - Loss of consciousness [Recovered/Resolved]
  - Vomiting [Recovered/Resolved]
  - Atelectasis [Recovered/Resolved]
  - Hypoxia [Recovered/Resolved]
  - Diarrhoea [Unknown]
  - Fall [Unknown]
  - Fatigue [Unknown]
  - Retching [Unknown]
  - Pulmonary arterial hypertension [Fatal]
  - Peripheral swelling [Recovered/Resolved]
  - Dyspnoea [Recovered/Resolved]
  - Hypotension [Unknown]
  - Cardiomegaly [Recovered/Resolved]
  - Rash generalised [Unknown]
  - Skin tightness [Unknown]
  - Fluid retention [Recovered/Resolved]
  - Generalised oedema [Recovered/Resolved]
  - Abdominal distension [Recovered/Resolved]
  - Urine output decreased [Recovered/Resolved]
  - Oedema peripheral [Recovered/Resolved]
  - Headache [Unknown]
  - Pain in extremity [Unknown]
  - Disease progression [Fatal]
  - Acute respiratory failure [Recovered/Resolved]
  - Abdominal pain [Recovered/Resolved]
  - Pericardial effusion [Recovered/Resolved]
  - Ascites [Recovered/Resolved]
  - Lymphadenopathy [Recovered/Resolved]
  - Tricuspid valve incompetence [Recovered/Resolved]
  - Weight decreased [Unknown]
  - Blood potassium increased [Unknown]
  - Nausea [Recovered/Resolved]
  - Cardiac failure congestive [Recovered/Resolved]
  - Pulmonary oedema [Recovered/Resolved]
  - Weight increased [Recovered/Resolved]
  - Application site erythema [Recovering/Resolving]
  - Pain [Unknown]
  - Feeling abnormal [Unknown]
  - Dizziness [Unknown]
  - Application site pain [Unknown]
  - Application site swelling [Unknown]
  - Dyspnoea exertional [Unknown]
  - Device related infection [Unknown]
  - Gait disturbance [Unknown]
  - Application site pruritus [Unknown]
  - Blood potassium decreased [Recovered/Resolved]
  - Oxygen saturation decreased [Unknown]
  - Blood pressure decreased [Unknown]
  - Catheter management [Unknown]
  - Urinary incontinence [Unknown]
  - Chest pain [Recovered/Resolved]
  - Cor pulmonale [Recovered/Resolved]
  - Decreased appetite [Unknown]
  - Heart rate increased [Unknown]
  - Epistaxis [Unknown]

NARRATIVE: CASE EVENT DATE: 20151014
